FAERS Safety Report 6110456-4 (Version None)
Quarter: 2009Q1

REPORT INFORMATION
  Report Type: 
  Country: None (occurrence: None)
  Receive Date: 20090310
  Receipt Date: 20090302
  Transmission Date: 20090719
  Serious: Yes (Hospitalization, Other)
  Sender: FDA-Public Use
  Company Number: FR-AMGEN-UK304994

PATIENT
  Sex: Female
  Weight: 38 kg

DRUGS (3)
  1. KINERET [Suspect]
     Indication: RHEUMATOID ARTHRITIS
     Route: 058
     Dates: start: 20050712, end: 20080124
  2. KINERET [Suspect]
     Route: 058
     Dates: start: 20080826, end: 20080829
  3. ZOPICLONE [Concomitant]
     Route: 048

REACTIONS (2)
  - HERPES VIRUS INFECTION [None]
  - NEUTROPENIA [None]
